FAERS Safety Report 16677934 (Version 2)
Quarter: 2019Q3

REPORT INFORMATION
  Report Type: Spontaneous
  Country: US (occurrence: US)
  Receive Date: 20190807
  Receipt Date: 20190919
  Transmission Date: 20191004
  Serious: No
  Sender: FDA-Public Use
  Company Number: US-PFIZER INC-2019331244

PATIENT
  Age: 80 Year
  Sex: Male

DRUGS (1)
  1. SUTENT [Suspect]
     Active Substance: SUNITINIB MALATE
     Indication: HEAD AND NECK CANCER
     Dosage: UNK (37.5; UNIT NOT PROVIDED)

REACTIONS (3)
  - Off label use [Unknown]
  - Full blood count decreased [Unknown]
  - Product use in unapproved indication [Unknown]
